FAERS Safety Report 5918553-0 (Version None)
Quarter: 2008Q4

REPORT INFORMATION
  Report Type: 
  Country: None (occurrence: None)
  Receive Date: 20081014
  Receipt Date: 20081014
  Transmission Date: 20090506
  Serious: Yes (Life-Threatening, Hospitalization)
  Sender: FDA-Public Use
  Company Number: None

PATIENT
  Age: 30 Year
  Sex: Female
  Weight: 54.4316 kg

DRUGS (1)
  1. PLAN B [Suspect]
     Dates: start: 20080720, end: 20080720

REACTIONS (5)
  - DRUG EXPOSURE DURING PREGNANCY [None]
  - ECTOPIC PREGNANCY [None]
  - FALLOPIAN TUBE DISORDER [None]
  - PREGNANCY AFTER POST COITAL CONTRACEPTION [None]
  - SCAR [None]
